FAERS Safety Report 16253871 (Version 3)
Quarter: 2025Q4

REPORT INFORMATION
  Report Type: Report from Study
  Country: JP (occurrence: JP)
  Receive Date: 20190430
  Receipt Date: 20251009
  Transmission Date: 20260118
  Serious: Yes (Hospitalization, Other)
  Sender: ALEXION PHARMACEUTICALS
  Company Number: JP-ALEXION PHARMACEUTICALS INC.-A201906542

PATIENT
  Age: 44 Year
  Sex: Male
  Weight: 77 kg

DRUGS (6)
  1. SOLIRIS [Suspect]
     Active Substance: ECULIZUMAB
     Indication: Paroxysmal nocturnal haemoglobinuria
     Dosage: 600 MG, QW
     Dates: start: 20130710, end: 20130731
  2. SOLIRIS [Suspect]
     Active Substance: ECULIZUMAB
     Dosage: 900 MG, UNK
  3. FEBUXOSTAT [Concomitant]
     Active Substance: FEBUXOSTAT
     Indication: Paroxysmal nocturnal haemoglobinuria
     Dosage: 10 MILLIGRAM, QD
     Route: 065
     Dates: start: 20180614
  4. FOLIC ACID [Concomitant]
     Active Substance: FOLIC ACID
     Indication: Paroxysmal nocturnal haemoglobinuria
     Dosage: 20 MG, DAILY
     Route: 065
  5. UNSPECIFIED INGREDIENT [Concomitant]
     Active Substance: UNSPECIFIED INGREDIENT
     Indication: Paroxysmal nocturnal haemoglobinuria
     Dosage: 900 MG, DAILY
     Route: 065
  6. LENOGRASTIM [Concomitant]
     Active Substance: LENOGRASTIM
     Indication: Paroxysmal nocturnal haemoglobinuria
     Dosage: 250 ?G, Q10D
     Route: 065

REACTIONS (4)
  - Acute kidney injury [Recovered/Resolved]
  - Haemolysis [Recovered/Resolved]
  - Sinusitis [Recovered/Resolved]
  - Breakthrough haemolysis [Unknown]

NARRATIVE: CASE EVENT DATE: 20190413
